FAERS Safety Report 8242420-3 (Version None)
Quarter: 2012Q1

REPORT INFORMATION
  Report Type: 
  Country: None (occurrence: None)
  Receive Date: 20120329
  Receipt Date: 20120320
  Transmission Date: 20120608
  Serious: Yes (Hospitalization)
  Sender: FDA-Public Use
  Company Number: ES-JNJFOC-20120309306

PATIENT
  Age: 80 Year
  Sex: Male

DRUGS (2)
  1. ZYTIGA [Suspect]
     Indication: PROSTATE CANCER
     Route: 048
     Dates: start: 20120201, end: 20120301
  2. PREDNISONE TAB [Concomitant]
     Indication: PROSTATE CANCER
     Route: 065
     Dates: start: 20120201, end: 20120301

REACTIONS (1)
  - THROMBOCYTOPENIA [None]
